FAERS Safety Report 7065364-1 (Version None)
Quarter: 2010Q4

REPORT INFORMATION
  Report Type: 
  Country: None (occurrence: None)
  Receive Date: 20101027
  Receipt Date: 20101018
  Transmission Date: 20110411
  Serious: Yes (Death, Hospitalization)
  Sender: FDA-Public Use
  Company Number: JP-AMGEN-KDC437220

PATIENT

DRUGS (13)
  1. PANITUMUMAB [Suspect]
     Dosage: 6 MG/KG, Q2WK
     Route: 041
     Dates: start: 20100809, end: 20100809
  2. IRINOTECAN HYDROCHLORIDE [Suspect]
     Dosage: 150 MG/M2, Q2WK
     Route: 041
     Dates: start: 20100722, end: 20100819
  3. MINOCYCLINE HCL [Suspect]
     Indication: PROPHYLAXIS
     Dosage: 50 MG, BID
     Route: 065
     Dates: start: 20100809
  4. MINOCYCLINE HCL [Suspect]
     Route: 048
     Dates: start: 20100809, end: 20100813
  5. FLUOROURACIL [Concomitant]
     Dosage: 3500 MG/M2, Q2WK
     Route: 040
     Dates: start: 20100722, end: 20100819
  6. FLUOROURACIL [Concomitant]
     Dosage: 600 MG/M2, Q2WK
     Route: 041
     Dates: start: 20100722, end: 20100819
  7. CALCIUM LEVOFOLINATE [Concomitant]
     Dosage: 300 MG/M2, Q2WK
     Route: 041
     Dates: start: 20100722, end: 20100819
  8. GRANISETRON HCL [Concomitant]
     Dosage: UNK UNK, UNK
     Route: 042
  9. GRANISETRON HCL [Concomitant]
     Route: 042
  10. MAGNESIUM OXIDE [Concomitant]
     Dosage: UNK UNK, UNK
     Route: 048
  11. MAGNESIUM OXIDE [Concomitant]
     Route: 048
  12. DECADRON [Concomitant]
     Indication: NAUSEA
     Route: 042
  13. URSO 250 [Concomitant]
     Indication: HEPATIC FUNCTION ABNORMAL
     Route: 048

REACTIONS (2)
  - DEATH [None]
  - INTERSTITIAL LUNG DISEASE [None]
